FAERS Safety Report 18908190 (Version 1)
Quarter: 2021Q1

REPORT INFORMATION
  Report Type: Spontaneous
  Country: BR (occurrence: BR)
  Receive Date: 20210218
  Receipt Date: 20210218
  Transmission Date: 20210420
  Serious: Yes (Other)
  Sender: FDA-Public Use
  Company Number: BR-ABBVIE-21P-020-3776159-00

PATIENT
  Sex: Female
  Weight: 63 kg

DRUGS (2)
  1. DIVALCON [Suspect]
     Active Substance: DIVALPROEX SODIUM
     Indication: JUVENILE MYOCLONIC EPILEPSY
     Dosage: DAILY DOSE 500 MILLIGRAM?ER
     Route: 048
     Dates: start: 2019
  2. DIVALCON [Suspect]
     Active Substance: DIVALPROEX SODIUM
     Indication: MUSCLE SPASMS

REACTIONS (9)
  - Muscle spasms [Not Recovered/Not Resolved]
  - Blood pressure decreased [Recovered/Resolved]
  - Dyskinesia [Not Recovered/Not Resolved]
  - Inappropriate schedule of product administration [Unknown]
  - Oral mucosal discolouration [Recovered/Resolved]
  - Loss of consciousness [Recovered/Resolved]
  - Product dose omission issue [Unknown]
  - Shock [Recovered/Resolved]
  - Seizure [Recovered/Resolved]

NARRATIVE: CASE EVENT DATE: 2020
